FAERS Safety Report 17292445 (Version 1)
Quarter: 2020Q1

REPORT INFORMATION
  Report Type: Spontaneous
  Country: US (occurrence: US)
  Receive Date: 20191231
  Receipt Date: 20191231
  Transmission Date: 20200409
  Serious: Yes (Hospitalization)
  Sender: FDA-Public Use
  Company Number: None

PATIENT
  Age: 40 Year
  Sex: Female
  Weight: 63.05 kg

DRUGS (6)
  1. MULTI-VIT [Concomitant]
     Active Substance: VITAMINS
  2. CRANBERRY PILL [Concomitant]
     Active Substance: CRANBERRY
  3. APPLE CIDER VINEGAR PILL [Concomitant]
  4. IRON [Concomitant]
     Active Substance: IRON
  5. OMNEPRAZOLE [Concomitant]
     Active Substance: OMEPRAZOLE
  6. RANITIDINE. [Suspect]
     Active Substance: RANITIDINE
     Indication: HIATUS HERNIA
     Dosage: ?          QUANTITY:ONE;?
     Route: 048
     Dates: start: 20190701, end: 20190830

REACTIONS (3)
  - Recalled product administered [None]
  - Abdominal pain upper [None]
  - Anaemia [None]

NARRATIVE: CASE EVENT DATE: 20190816
